FAERS Safety Report 10005435 (Version 7)
Quarter: 2014Q2

REPORT INFORMATION
  Report Type: Report from Study
  Country: CA (occurrence: CA)
  Receive Date: 20140313
  Receipt Date: 20140509
  Transmission Date: 20141212
  Serious: Yes (Death, Hospitalization)
  Sender: FDA-Public Use
  Company Number: CA-ROCHE-1296647

PATIENT
  Age: 41 Year
  Sex: Female
  Weight: 68.8 kg

DRUGS (12)
  1. AVASTIN [Suspect]
     Indication: GLIOBLASTOMA MULTIFORME
     Route: 042
     Dates: start: 20131017
  2. AVASTIN [Suspect]
     Route: 042
     Dates: start: 20131224
  3. AVASTIN [Suspect]
     Route: 042
     Dates: start: 20140101, end: 20140401
  4. LOMUSTINE [Suspect]
     Indication: PRODUCT USED FOR UNKNOWN INDICATION
     Route: 065
  5. ONDANSETRON [Suspect]
     Indication: PRODUCT USED FOR UNKNOWN INDICATION
     Route: 065
  6. CLOBAZAM [Concomitant]
  7. KEPPRA [Concomitant]
  8. ZOPICLONE [Concomitant]
  9. TYLENOL [Concomitant]
  10. SENOKOT [Concomitant]
  11. CHLOROPHYLL [Concomitant]
  12. DECADRON [Concomitant]
     Route: 065

REACTIONS (17)
  - Malignant neoplasm progression [Fatal]
  - Drug ineffective [Fatal]
  - Convulsion [Not Recovered/Not Resolved]
  - Oral candidiasis [Recovering/Resolving]
  - Thermal burn [Recovered/Resolved]
  - Laceration [Recovered/Resolved]
  - Influenza [Recovering/Resolving]
  - Abdominal pain [Recovered/Resolved]
  - Diarrhoea [Recovered/Resolved]
  - Dysgeusia [Recovering/Resolving]
  - Headache [Recovering/Resolving]
  - Laceration [Unknown]
  - Stress [Unknown]
  - Nasopharyngitis [Unknown]
  - Fatigue [Unknown]
  - Constipation [Unknown]
  - Incontinence [Not Recovered/Not Resolved]
